FAERS Safety Report 11088348 (Version 3)
Quarter: 2015Q3

REPORT INFORMATION
  Report Type: Spontaneous
  Country: US (occurrence: None)
  Receive Date: 20150430
  Receipt Date: 20150724
  Transmission Date: 20151125
  Serious: Yes (Life-Threatening, Hospitalization, Other)
  Sender: FDA-Public Use
  Company Number: ADR-2015-00848

PATIENT
  Age: 19 Year
  Sex: Male

DRUGS (5)
  1. FOSPHENYTOIN [Suspect]
     Active Substance: FOSPHENYTOIN\FOSPHENYTOIN SODIUM
  2. LIORESAL [Suspect]
     Active Substance: BACLOFEN
     Indication: MUSCLE SPASTICITY
     Dates: start: 20150402
  3. OXCARBAZEPINE. [Suspect]
     Active Substance: OXCARBAZEPINE
  4. DIAZEPAM. [Suspect]
     Active Substance: DIAZEPAM
  5. LORAZEPAM. [Suspect]
     Active Substance: LORAZEPAM

REACTIONS (22)
  - Hyperhidrosis [None]
  - Panic reaction [None]
  - Hypopnoea [None]
  - Infusion site cyst [None]
  - Seizure [None]
  - Unresponsive to stimuli [None]
  - Overdose [None]
  - Medical device complication [None]
  - Hypotonia [None]
  - Respiratory arrest [None]
  - Underdose [None]
  - Coma [None]
  - Immune system disorder [None]
  - Drug withdrawal syndrome [None]
  - Dyspnoea [None]
  - Autonomic nervous system imbalance [None]
  - Use of accessory respiratory muscles [None]
  - Restlessness [None]
  - Insomnia [None]
  - Bradycardia [None]
  - Irritability [None]
  - Infusion site mass [None]
